FAERS Safety Report 24176349 (Version 1)
Quarter: 2024Q3

REPORT INFORMATION
  Report Type: Spontaneous
  Country: EG (occurrence: EG)
  Receive Date: 20240806
  Receipt Date: 20240806
  Transmission Date: 20241016
  Serious: Yes (Other)
  Sender: NOVO NORDISK
  Company Number: EG-NOVOPROD-1261793

PATIENT
  Age: 732 Month
  Sex: Female
  Weight: 76 kg

DRUGS (2)
  1. CAPOTEN [Concomitant]
     Active Substance: CAPTOPRIL
     Indication: Hypertension
     Dosage: 2 TAB/DAYS
     Route: 048
  2. INSULIN HUMAN [Suspect]
     Active Substance: INSULIN HUMAN
     Indication: Diabetes mellitus
     Dosage: 40U AND 20U
     Route: 058

REACTIONS (3)
  - Aortic stenosis [Unknown]
  - Injection site fibrosis [Recovered/Resolved]
  - Blood glucose increased [Unknown]
